FAERS Safety Report 17166737 (Version 1)
Quarter: 2019Q4

REPORT INFORMATION
  Report Type: Spontaneous
  Country: FR (occurrence: FR)
  Receive Date: 20191217
  Receipt Date: 20191217
  Transmission Date: 20200122
  Serious: No
  Sender: FDA-Public Use
  Company Number: FR-CANTON LABORATORIES, LLC-2077938

PATIENT
  Age: 58 Year
  Sex: Female

DRUGS (6)
  1. CITALOPRAM [Concomitant]
     Active Substance: CITALOPRAM HYDROBROMIDE
     Route: 065
  2. NAPROSYN [Suspect]
     Active Substance: NAPROXEN
     Indication: PRODUCT USED FOR UNKNOWN INDICATION
     Route: 065
  3. OXAZEPAM. [Suspect]
     Active Substance: OXAZEPAM
     Route: 065
  4. ZOPICLONE [Suspect]
     Active Substance: ZOPICLONE
     Route: 065
  5. ACEBUTOLOL HYDROCHLORIDE. [Concomitant]
     Active Substance: ACEBUTOLOL HYDROCHLORIDE
     Route: 065
  6. DIACETOLOL [Concomitant]
     Route: 065

REACTIONS (11)
  - Bradycardia [Recovering/Resolving]
  - Hypocoagulable state [Recovering/Resolving]
  - Pneumonia aspiration [Unknown]
  - Toxicity to various agents [Recovering/Resolving]
  - Suicide attempt [Unknown]
  - Hypotension [Recovering/Resolving]
  - Electrocardiogram QT prolonged [Recovering/Resolving]
  - Coma [Recovered/Resolved]
  - Lactic acidosis [Recovering/Resolving]
  - Intentional overdose [Unknown]
  - Thrombocytopenia [Recovering/Resolving]
